FAERS Safety Report 5241879-3 (Version None)
Quarter: 2007Q1

REPORT INFORMATION
  Report Type: 
  Country: None (occurrence: None)
  Receive Date: 20070212
  Receipt Date: 20070212
  Transmission Date: 20070707
  Serious: Yes (Hospitalization)
  Sender: FDA-Public Use
  Company Number: None

PATIENT
  Sex: Male
  Weight: 103.4201 kg

DRUGS (3)
  1. IRINOTECAN HCL [Suspect]
     Indication: ADENOCARCINOMA
     Dosage: 220MG ONCE IV
     Route: 042
     Dates: start: 20061120
  2. GEMCITABINE [Suspect]
     Indication: ADENOCARCINOMA
     Dosage: 2) 90 MG ONCE IV
     Route: 042
     Dates: start: 20061120
  3. ONDANSETRON [Concomitant]

REACTIONS (3)
  - BLOOD CREATININE INCREASED [None]
  - DIARRHOEA [None]
  - VOMITING [None]
